FAERS Safety Report 22024500 (Version 1)
Quarter: 2023Q1

REPORT INFORMATION
  Report Type: Spontaneous
  Country: US (occurrence: None)
  Receive Date: 20230223
  Receipt Date: 20230223
  Transmission Date: 20230417
  Serious: Yes (Other)
  Sender: FDA-Public Use
  Company Number: US-ROCHE-3042148

PATIENT
  Sex: Female

DRUGS (6)
  1. XOLAIR [Suspect]
     Active Substance: OMALIZUMAB
     Indication: Asthma
     Dosage: STRENGTH: 75MG/0.5ML (INJECT 375 MG UNDER THE SKIN (SUBCUTANEOUS) EVERY TWO WEEKS)
     Route: 058
     Dates: start: 20210629
  2. XOLAIR [Suspect]
     Active Substance: OMALIZUMAB
     Dosage: STRENGTH: 150MG/0.5ML (INJECT 375 MG UNDER THE SKIN (SUBCUTANEOUS) EVERY TWO WEEKS)
     Route: 058
  3. ADVAIR DISKUS [Concomitant]
     Active Substance: FLUTICASONE PROPIONATE\SALMETEROL XINAFOATE
     Dosage: 100/50MG
  4. METHOTREXATE [Concomitant]
     Active Substance: METHOTREXATE
  5. PROAIR HFA [Concomitant]
     Active Substance: ALBUTEROL SULFATE
  6. SPIRIVA [Concomitant]
     Active Substance: TIOTROPIUM BROMIDE MONOHYDRATE
     Dosage: 1.25MCG

REACTIONS (1)
  - Breast cancer [Unknown]
